FAERS Safety Report 7031413-X (Version None)
Quarter: 2010Q4

REPORT INFORMATION
  Report Type: 
  Country: None (occurrence: None)
  Receive Date: 20101006
  Receipt Date: 20100929
  Transmission Date: 20110411
  Serious: Yes (Hospitalization)
  Sender: FDA-Public Use
  Company Number: US-US-EMD SERONO, INC.-7011103

PATIENT
  Sex: Female

DRUGS (3)
  1. REBIF [Suspect]
     Indication: MULTIPLE SCLEROSIS
     Route: 058
     Dates: start: 20021001, end: 20021101
  2. REBIF [Suspect]
     Route: 058
     Dates: start: 20100718, end: 20100101
  3. REBIF [Suspect]
     Route: 058
     Dates: start: 20100101

REACTIONS (4)
  - HYPERTENSION [None]
  - INJECTION SITE REACTION [None]
  - MULTIPLE SCLEROSIS RELAPSE [None]
  - RENAL CANCER STAGE III [None]
